FAERS Safety Report 4829023-5 (Version None)
Quarter: 2005Q4

REPORT INFORMATION
  Report Type: 
  Country: None (occurrence: None)
  Receive Date: 20051027
  Receipt Date: 20050412
  Transmission Date: 20060501
  Serious: Yes (Other)
  Sender: FDA-Public Use
  Company Number: HQWYE074518APR05

PATIENT
  Age: 57 Year
  Sex: Female
  Weight: 44.49 kg

DRUGS (2)
  1. PREMARIN [Suspect]
     Indication: HORMONE REPLACEMENT THERAPY
     Dosage: 0.125 MG 1X PER 1 DAY,
     Dates: start: 19940101
  2. NORETHINDRONE ACETATE [Concomitant]

REACTIONS (1)
  - DYSPHAGIA [None]
